FAERS Safety Report 11040879 (Version 4)
Quarter: 2015Q3

REPORT INFORMATION
  Report Type: Spontaneous
  Country: US (occurrence: US)
  Receive Date: 20150416
  Receipt Date: 20150727
  Transmission Date: 20151125
  Serious: No
  Sender: FDA-Public Use
  Company Number: US-ELI_LILLY_AND_COMPANY-US201504004315

PATIENT
  Sex: Female

DRUGS (1)
  1. FORTEO [Suspect]
     Active Substance: TERIPARATIDE
     Indication: OSTEOPOROSIS
     Dosage: 20 UG, QOD
     Route: 065
     Dates: start: 201504

REACTIONS (16)
  - Feeling abnormal [Not Recovered/Not Resolved]
  - Inappropriate schedule of drug administration [Not Recovered/Not Resolved]
  - Pain in jaw [Not Recovered/Not Resolved]
  - Feeling abnormal [Unknown]
  - Adverse event [Unknown]
  - Limb discomfort [Unknown]
  - Depressed mood [Unknown]
  - Rhinorrhoea [Unknown]
  - Insomnia [Unknown]
  - Musculoskeletal discomfort [Unknown]
  - Spinal fracture [Unknown]
  - Dizziness [Unknown]
  - Fracture pain [Unknown]
  - Nervousness [Unknown]
  - Fatigue [Unknown]
  - Malaise [Unknown]
